FAERS Safety Report 9999069 (Version 2)
Quarter: 2014Q1

REPORT INFORMATION
  Report Type: Spontaneous
  Country: US (occurrence: FR)
  Receive Date: 20140312
  Receipt Date: 20140312
  Transmission Date: 20141002
  Serious: Yes (Hospitalization, Other)
  Sender: FDA-Public Use
  Company Number: 2014SP001311

PATIENT
  Age: 73 Year
  Sex: Female

DRUGS (20)
  1. DEXAMETHASONE [Suspect]
     Indication: PRODUCT USED FOR UNKNOWN INDICATION
     Route: 042
  2. DEXAMETHASONE [Suspect]
     Route: 042
  3. PANTOPRAZOLE [Suspect]
     Indication: PRODUCT USED FOR UNKNOWN INDICATION
     Route: 048
     Dates: start: 20130930, end: 20131002
  4. PANTOPRAZOLE [Suspect]
     Route: 048
     Dates: start: 20130930, end: 20131002
  5. ALPRAZOLAM [Suspect]
     Indication: PREMEDICATION
     Route: 048
     Dates: start: 20130929, end: 20130930
  6. PROPOFOL [Suspect]
     Route: 042
     Dates: start: 20130930, end: 20130930
  7. MIDAZOLAM [Suspect]
     Route: 042
     Dates: start: 20130930, end: 20130930
  8. ATRACURIUM BESILATE [Suspect]
     Route: 042
     Dates: start: 20130930, end: 20130930
  9. KETAMINE [Suspect]
     Route: 042
     Dates: start: 20130930, end: 20130930
  10. SUFENTA [Suspect]
     Route: 042
     Dates: start: 20130930, end: 20130930
  11. NEFOPAM HYDROCHLORIDE [Suspect]
     Route: 042
     Dates: start: 20130930, end: 20130930
  12. TRANEXAMIC ACID [Suspect]
     Route: 042
     Dates: start: 20130930, end: 20130930
  13. ROPIVACAINE HYDROCHLORIDE [Suspect]
     Route: 042
     Dates: start: 20130930, end: 20130930
  14. EPOETIN ALFA [Suspect]
     Route: 042
     Dates: start: 20130930, end: 20130930
  15. KETOPROFEN [Suspect]
     Route: 048
     Dates: start: 20130930, end: 20131002
  16. PERFALGAN [Concomitant]
     Route: 042
     Dates: start: 20130930
  17. ACTISKENAN [Concomitant]
     Route: 048
     Dates: start: 02010930
  18. RAMIPRIL [Concomitant]
     Dates: end: 20130928
  19. LEVOTHYROX [Concomitant]
  20. LAROXYL [Concomitant]

REACTIONS (7)
  - Pancreatitis acute [Recovered/Resolved]
  - Lipase increased [Recovered/Resolved]
  - Renal failure acute [Unknown]
  - Ileus [Unknown]
  - Food intolerance [Unknown]
  - Vomiting [Unknown]
  - Abdominal pain [Unknown]
